FAERS Safety Report 6204101-7 (Version None)
Quarter: 2009Q2

REPORT INFORMATION
  Report Type: 
  Country: None (occurrence: None)
  Receive Date: 20090527
  Receipt Date: 20090514
  Transmission Date: 20091009
  Serious: Yes (Other)
  Sender: FDA-Public Use
  Company Number: US-PFIZER INC-2006026071

PATIENT
  Sex: Female

DRUGS (7)
  1. PROVERA [Suspect]
     Indication: MENOPAUSE
     Dosage: 10 MG, UNK
     Route: 048
     Dates: start: 19850101, end: 20001001
  2. PREMARIN [Suspect]
     Indication: MENOPAUSE
     Dosage: 1.25 MG, UNK
     Dates: start: 19830101, end: 20001001
  3. PREMPRO [Suspect]
     Indication: MENOPAUSE
     Dosage: 0.625 MG, 2.5 MG
     Dates: start: 19960901, end: 20000101
  4. INDERAL [Concomitant]
     Indication: MIGRAINE
     Dosage: UNK
     Dates: start: 19820217
  5. HYDRODIURIL [Concomitant]
     Indication: DIURETIC THERAPY
     Dosage: UNK
     Dates: start: 19820217
  6. POTASSIUM [Concomitant]
     Dosage: 1500 MG, 1X/DAY
     Dates: start: 19820217
  7. PROPRANOLOL [Concomitant]
     Indication: BLOOD PRESSURE
     Dosage: UNK
     Dates: start: 19820217

REACTIONS (1)
  - BREAST CANCER FEMALE [None]
